FAERS Safety Report 5634242-4 (Version None)
Quarter: 2008Q1

REPORT INFORMATION
  Report Type: 
  Country: None (occurrence: None)
  Receive Date: 20080131
  Receipt Date: 20071016
  Transmission Date: 20080703
  Serious: Yes (Other)
  Sender: FDA-Public Use
  Company Number: 159763USA

PATIENT
  Age: 43 Year
  Sex: Female

DRUGS (6)
  1. COPAXONE [Suspect]
     Indication: MULTIPLE SCLEROSIS
     Dosage: 20 MG, SUBCUTANEOUS
     Dates: start: 20070426, end: 20070716
  2. METHYPREDNISOLONE SODIUM SUCCINATE [Concomitant]
  3. ERGOCALCIFEROL [Concomitant]
  4. FISH OIL [Concomitant]
  5. OMEPRAZOLE [Concomitant]
  6. ASCORBIC ACID [Concomitant]

REACTIONS (2)
  - HEPATITIS [None]
  - HEPATITIS ACUTE [None]
